FAERS Safety Report 21365070 (Version 5)
Quarter: 2023Q2

REPORT INFORMATION
  Report Type: Report from Study
  Country: CN (occurrence: None)
  Receive Date: 20220922
  Receipt Date: 20230414
  Transmission Date: 20230722
  Serious: Yes (Hospitalization)
  Sender: FDA-Public Use
  Company Number: CN-ROCHE-3182312

PATIENT
  Age: 69 Year
  Sex: Female
  Weight: 50.5 kg

DRUGS (16)
  1. BEVACIZUMAB [Suspect]
     Active Substance: BEVACIZUMAB
     Indication: Colon cancer stage IV
     Route: 042
     Dates: start: 20211207, end: 20220628
  2. CAPECITABINE [Suspect]
     Active Substance: CAPECITABINE
     Indication: Colon cancer stage IV
     Dosage: D1-D14, Q3W
     Route: 048
     Dates: start: 20211207
  3. CAPECITABINE [Suspect]
     Active Substance: CAPECITABINE
     Dosage: D1-D14, Q3W
     Route: 048
     Dates: start: 20220628, end: 20220711
  4. OXALIPLATIN [Suspect]
     Active Substance: OXALIPLATIN
     Indication: Colon cancer stage IV
     Route: 041
     Dates: start: 20211207, end: 20220304
  5. OXALIPLATIN [Suspect]
     Active Substance: OXALIPLATIN
     Route: 041
     Dates: start: 20220323, end: 20220424
  6. OXALIPLATIN [Suspect]
     Active Substance: OXALIPLATIN
     Route: 041
     Dates: start: 20220516, end: 20220516
  7. YI QI WEI XUE [Concomitant]
     Indication: Anaemia
     Dosage: 4 CAPSULES
     Route: 048
     Dates: start: 20220628
  8. YANG XUE YIN [Concomitant]
     Route: 048
     Dates: start: 20220628
  9. ZHEN QI FU ZHENG [Concomitant]
     Route: 048
     Dates: start: 20220628
  10. FU FANG ZAO FAN [Concomitant]
     Indication: White blood cell count decreased
     Route: 048
     Dates: start: 20220516
  11. CEFACLOR [Concomitant]
     Active Substance: CEFACLOR
     Indication: Pneumonitis
     Route: 048
     Dates: start: 20220706, end: 20220707
  12. CEFACLOR [Concomitant]
     Active Substance: CEFACLOR
     Route: 048
     Dates: start: 20220708
  13. LEVOFLOXACIN [Concomitant]
     Active Substance: LEVOFLOXACIN
     Dates: start: 20220712
  14. MOXIFLOXACIN HYDROCHLORIDE [Concomitant]
     Active Substance: MOXIFLOXACIN HYDROCHLORIDE
     Route: 048
     Dates: start: 20220715
  15. SODIUM CHLORIDE [Concomitant]
     Active Substance: SODIUM CHLORIDE
     Route: 042
     Dates: start: 20220712, end: 20220715
  16. LEUCOGEN [Concomitant]
     Active Substance: LEUCOGEN
     Indication: Platelet count decreased
     Route: 048
     Dates: start: 20220824

REACTIONS (2)
  - Pneumonitis [Recovered/Resolved]
  - Pleural effusion [Recovered/Resolved]

NARRATIVE: CASE EVENT DATE: 20220629
